FAERS Safety Report 4486543-3 (Version None)
Quarter: 2004Q4

REPORT INFORMATION
  Report Type: 
  Country: None (occurrence: None)
  Receive Date: 20041021
  Receipt Date: 20041012
  Transmission Date: 20050328
  Serious: Yes (Death)
  Sender: FDA-Public Use
  Company Number: STA-AE-04-MTX-479

PATIENT
  Age: 78 Year
  Sex: Female

DRUGS (13)
  1. RHEUMATREX [Suspect]
     Indication: RHEUMATOID ARTHRITIS
     Dosage: 4 MG A WEEK, ORAL
     Route: 048
     Dates: end: 20040811
  2. DIDRONEL [Suspect]
     Indication: OSTEOPOROSIS
     Dosage: 1 TABLET DAILY, ORAL
     Route: 048
     Dates: start: 20040602, end: 20040615
  3. LASIX [Suspect]
     Indication: OEDEMA
     Dosage: 1 TABLET DAILY, ORAL
     Route: 048
     Dates: start: 20040724, end: 20040813
  4. ALFAROL (ALFACALCIDOL) [Concomitant]
  5. EPINASTINE HYDROCHLORIDE (EPINASTINE HYDROCHLORIDE) [Concomitant]
  6. BUP-4 (PROPIVERINE HYDROCHLORIDE) [Concomitant]
  7. ALUSA  (ALDIOXA) [Concomitant]
  8. RIMATIL (BUCILLAMINE) [Concomitant]
  9. ORCL (ACTARIT) [Concomitant]
  10. LOXOPROFEN (LOXOPROFEN) [Concomitant]
  11. TAGAMET [Concomitant]
  12. INTEDARU (INDOMETACIN) [Concomitant]
  13. PREDNISOLONE [Concomitant]

REACTIONS (5)
  - APHTHOUS STOMATITIS [None]
  - MUCOSAL HAEMORRHAGE [None]
  - PANCYTOPENIA [None]
  - PNEUMONIA [None]
  - RASH [None]
